FAERS Safety Report 14491276 (Version 1)
Quarter: 2018Q1

REPORT INFORMATION
  Report Type: Report from Study
  Country: US (occurrence: US)
  Receive Date: 20180206
  Receipt Date: 20180206
  Transmission Date: 20180509
  Serious: Yes (Life-Threatening, Other)
  Sender: FDA-Public Use
  Company Number: US-TESARO, INC.-US-2018TSO00582

PATIENT

DRUGS (1)
  1. ZEJULA [Suspect]
     Active Substance: NIRAPARIB
     Indication: FALLOPIAN TUBE NEOPLASM
     Dosage: 300 MG, QD
     Route: 048
     Dates: start: 20170526

REACTIONS (2)
  - Disease progression [Unknown]
  - Adverse reaction [Unknown]
